FAERS Safety Report 16478592 (Version 1)
Quarter: 2019Q2

REPORT INFORMATION
  Report Type: Spontaneous
  Country: US (occurrence: US)
  Receive Date: 20190626
  Receipt Date: 20190626
  Transmission Date: 20190711
  Serious: Yes (Other)
  Sender: FDA-Public Use
  Company Number: US-PFIZER INC-2019265238

PATIENT
  Age: 76 Year
  Sex: Male
  Weight: 78.19 kg

DRUGS (4)
  1. HEPARIN SODIUM. [Suspect]
     Active Substance: HEPARIN SODIUM
     Dosage: 4000 IU, UNK (10,000UNITS/10ML, A 1,000/100 CONCENTRATION )
     Dates: start: 20190605
  2. HEPARIN SODIUM. [Suspect]
     Active Substance: HEPARIN SODIUM
     Dosage: 3000 IU, UNK (10,000UNITS/10ML, A 1,000/100 CONCENTRATION)
  3. HEPARIN SODIUM. [Suspect]
     Active Substance: HEPARIN SODIUM
     Indication: AORTIC VALVE REPLACEMENT
     Dosage: 9000 IU, UNK (10,000UNITS/10ML, A 1,000/100 CONCENTRATION )
  4. HEPARIN SODIUM. [Suspect]
     Active Substance: HEPARIN SODIUM
     Dosage: 4000 IU, UNK (10,000UNITS/10ML, A 1,000/100 CONCENTRATION )
     Dates: start: 20190605

REACTIONS (3)
  - Poor quality product administered [Recovering/Resolving]
  - Product quality issue [Recovering/Resolving]
  - Drug ineffective [Recovering/Resolving]

NARRATIVE: CASE EVENT DATE: 20190605
